FAERS Safety Report 19436048 (Version 1)
Quarter: 2021Q2

REPORT INFORMATION
  Report Type: Spontaneous
  Country: US (occurrence: US)
  Receive Date: 20210618
  Receipt Date: 20210618
  Transmission Date: 20210717
  Serious: Yes (Other)
  Sender: FDA-Public Use
  Company Number: NVSC2021US137177

PATIENT
  Age: 40 Year
  Sex: Female

DRUGS (2)
  1. RANITIDINE. [Suspect]
     Active Substance: RANITIDINE
     Indication: HYPERSENSITIVITY
     Dosage: 300 MG, QD
     Route: 065
     Dates: start: 201306, end: 201508
  2. RANITIDINE. [Suspect]
     Active Substance: RANITIDINE
     Indication: HYPERSENSITIVITY
     Dosage: 300 MG, QD
     Route: 065
     Dates: start: 201306, end: 201508

REACTIONS (2)
  - Product use in unapproved indication [Unknown]
  - Breast cancer [Unknown]

NARRATIVE: CASE EVENT DATE: 20150820
